FAERS Safety Report 6607436-9 (Version None)
Quarter: 2010Q1

REPORT INFORMATION
  Report Type: 
  Country: None (occurrence: None)
  Receive Date: 20100301
  Receipt Date: 20100215
  Transmission Date: 20100710
  Serious: Yes (Hospitalization)
  Sender: FDA-Public Use
  Company Number: US-ELI_LILLY_AND_COMPANY-US201001004753

PATIENT
  Sex: Female
  Weight: 85.714 kg

DRUGS (11)
  1. PEMETREXED [Suspect]
     Indication: NON-SMALL CELL LUNG CANCER
     Dosage: 890 MG, OTHER
     Route: 042
     Dates: start: 20091203, end: 20091223
  2. PEMETREXED [Suspect]
     Dosage: 688 MG, UNK
     Route: 042
     Dates: start: 20100113, end: 20100113
  3. CARBOPLATIN [Suspect]
     Indication: NON-SMALL CELL LUNG CANCER
     Dosage: 882 MG, OTHER
     Route: 042
     Dates: start: 20091203
  4. AMITIZA [Concomitant]
     Dosage: 8 MG, 2/D
     Route: 048
     Dates: start: 20091117
  5. ALOXI [Concomitant]
     Indication: NAUSEA
  6. ZANTAC [Concomitant]
     Indication: PREMEDICATION
  7. VICODIN [Concomitant]
     Dates: end: 20100121
  8. ACETAMINOPHEN [Concomitant]
  9. DIPHENHYDRAMINE HCL [Concomitant]
  10. LORAZEPAM [Concomitant]
  11. PROMETHAZINE [Concomitant]

REACTIONS (2)
  - DEHYDRATION [None]
  - SEPSIS [None]
